FAERS Safety Report 26157605 (Version 1)
Quarter: 2025Q4

REPORT INFORMATION
  Report Type: Report from Study
  Country: CN (occurrence: CN)
  Receive Date: 20251215
  Receipt Date: 20251215
  Transmission Date: 20260118
  Serious: Yes (Other)
  Sender: ROCHE
  Company Number: CN-ROCHE-10000456598

PATIENT

DRUGS (1)
  1. OBINUTUZUMAB [Suspect]
     Active Substance: OBINUTUZUMAB
     Indication: Glomerulonephritis membranous
     Dosage: 2 WEEKS INTERVAL
     Route: 042

REACTIONS (5)
  - Neutropenia [Unknown]
  - Infusion related reaction [Unknown]
  - Headache [Unknown]
  - Rash [Unknown]
  - Malaise [Unknown]
